FAERS Safety Report 14733377 (Version 1)
Quarter: 2018Q2

REPORT INFORMATION
  Report Type: Spontaneous
  Country: US (occurrence: US)
  Receive Date: 20180409
  Receipt Date: 20180409
  Transmission Date: 20180711
  Serious: Yes (Hospitalization)
  Sender: FDA-Public Use
  Company Number: US-HORIZON-PRE-0148-2018

PATIENT
  Age: 66 Year
  Sex: Male

DRUGS (9)
  1. HYDROCHLOROTHIAZIDE. [Concomitant]
     Active Substance: HYDROCHLOROTHIAZIDE
     Indication: HYPERTENSION
  2. PREDNISONE. [Suspect]
     Active Substance: PREDNISONE
     Indication: TAKAYASU^S ARTERITIS
     Dosage: STARTED AT 20 MG DAILY, INCREASED TO 40 MG DAILY
     Route: 048
  3. HYDRALAZINE [Concomitant]
     Active Substance: HYDRALAZINE HYDROCHLORIDE
     Indication: HYPERTENSION
  4. METHOTREXATE. [Suspect]
     Active Substance: METHOTREXATE
     Indication: TAKAYASU^S ARTERITIS
     Dosage: 7.5 MG WEEKLY
     Route: 048
  5. ATORVASTATIN [Concomitant]
     Active Substance: ATORVASTATIN
     Indication: HYPERCHOLESTEROLAEMIA
  6. CLONIDINE PATCH [Concomitant]
     Active Substance: CLONIDINE
     Indication: HYPERTENSION
  7. AMLODIPINE [Concomitant]
     Active Substance: AMLODIPINE BESYLATE
     Indication: HYPERTENSION
  8. CARVEDILOL. [Concomitant]
     Active Substance: CARVEDILOL
     Indication: HYPERTENSION
  9. LISINOPRIL. [Concomitant]
     Active Substance: LISINOPRIL
     Indication: HYPERTENSION

REACTIONS (1)
  - Anaemia [Unknown]
